FAERS Safety Report 15186648 (Version 1)
Quarter: 2018Q3

REPORT INFORMATION
  Report Type: Report from Study
  Country: US (occurrence: US)
  Receive Date: 20180723
  Receipt Date: 20180723
  Transmission Date: 20181010
  Serious: No
  Sender: FDA-Public Use
  Company Number: US-EXELIXIS-CABO-17011663

PATIENT
  Sex: Male

DRUGS (9)
  1. VIAGRA [Concomitant]
     Active Substance: SILDENAFIL CITRATE
  2. LISINOPRIL HCTZ [Concomitant]
     Active Substance: HYDROCHLOROTHIAZIDE\LISINOPRIL
  3. COMETRIQ [Suspect]
     Active Substance: CABOZANTINIB S-MALATE
     Indication: METASTASES TO LYMPH NODES
     Dosage: 40 MG, QD
     Route: 048
     Dates: start: 201710
  4. COMETRIQ [Suspect]
     Active Substance: CABOZANTINIB S-MALATE
     Indication: THYROID CANCER
     Dosage: 60 MG, QD
     Route: 048
     Dates: start: 20160825, end: 201610
  5. SYNTHROID [Concomitant]
     Active Substance: LEVOTHYROXINE SODIUM
  6. MEGESTROL ACETATE. [Concomitant]
     Active Substance: MEGESTROL ACETATE
  7. IBUPROFEN. [Concomitant]
     Active Substance: IBUPROFEN
  8. TRAMADOL HCL [Concomitant]
     Active Substance: TRAMADOL HYDROCHLORIDE
  9. XGEVA [Concomitant]
     Active Substance: DENOSUMAB

REACTIONS (5)
  - Ageusia [Unknown]
  - Pain [Unknown]
  - Respiratory tract infection [Unknown]
  - Dysphonia [Unknown]
  - Diarrhoea [Unknown]
